FAERS Safety Report 9837543 (Version 1)
Quarter: 2014Q1

REPORT INFORMATION
  Report Type: Spontaneous
  Country: US (occurrence: US)
  Receive Date: 20140123
  Receipt Date: 20140123
  Transmission Date: 20141002
  Serious: Yes (Other)
  Sender: FDA-Public Use
  Company Number: US-JNJFOC-20140112020

PATIENT
  Age: 49 Year
  Sex: Female
  Weight: 80.74 kg

DRUGS (11)
  1. REMICADE [Suspect]
     Indication: COLITIS
     Dosage: STARTED 10 YEARS AGO
     Route: 042
  2. TOPAMAX [Suspect]
     Indication: MIGRAINE PROPHYLAXIS
     Route: 048
     Dates: start: 20131217, end: 201401
  3. TOPAMAX [Suspect]
     Indication: MIGRAINE PROPHYLAXIS
     Route: 048
     Dates: start: 201312, end: 20131216
  4. TOPIRAMATE [Suspect]
     Indication: PRODUCT USED FOR UNKNOWN INDICATION
     Route: 048
     Dates: start: 20140113
  5. TOPIRAMATE [Suspect]
     Indication: PRODUCT USED FOR UNKNOWN INDICATION
     Route: 048
     Dates: start: 201401, end: 20140112
  6. MERCAPTOPURINE [Concomitant]
     Indication: COLITIS
     Dosage: STARTED 10 YEARS AGO
     Route: 065
  7. LIALDA [Concomitant]
     Indication: COLITIS
     Dosage: STARTED 10 YEARS AGO
     Route: 065
  8. PROZAC [Concomitant]
     Indication: PREMENSTRUAL SYNDROME
     Route: 065
  9. ACIDOPHILUS [Concomitant]
     Indication: MIGRAINE
     Route: 065
  10. ZANTAC [Concomitant]
     Indication: GASTROOESOPHAGEAL REFLUX DISEASE
     Route: 065
  11. MAGNESIUM [Concomitant]
     Indication: MIGRAINE
     Route: 065

REACTIONS (2)
  - Syncope [Unknown]
  - Migraine [Unknown]
